FAERS Safety Report 9782974 (Version 1)
Quarter: 2013Q4

REPORT INFORMATION
  Report Type: Spontaneous
  Country: US (occurrence: None)
  Receive Date: 20131223
  Receipt Date: 20131223
  Transmission Date: 20140711
  Serious: No
  Sender: FDA-Public Use
  Company Number: EUS-2011-00769

PATIENT
  Age: 22 Year
  Sex: Male

DRUGS (7)
  1. ERWINASE (ASPARAGINASE) [Suspect]
     Indication: ACUTE LYMPHOCYTIC LEUKAEMIA
     Dates: start: 20111111, end: 20111114
  2. BACTRIM (SULFAMETHOXAZOLE) (SULFAMETHOXAZOLE) [Concomitant]
  3. LEVAQUIN (LEVOFLOXACIN) [Concomitant]
  4. MERCAPTOPURINE (MERCAPTOPURINE) [Concomitant]
  5. PROTONIX (PANTOPRAZOLE) (PANTOPRAZOLE) [Concomitant]
  6. ZOFRAN (ONDANSETRON HYDROCHLORIDE) (TABLET) (ONDANSETRON HYDROCHLORIDE) [Concomitant]
  7. DIPHENHYDRAMINE (DIPHENHYDRAMINE) [Concomitant]

REACTIONS (4)
  - Hypersensitivity [None]
  - Nausea [None]
  - Vomiting [None]
  - Fatigue [None]
